FAERS Safety Report 19487486 (Version 1)
Quarter: 2021Q3

REPORT INFORMATION
  Report Type: Spontaneous
  Country: CA (occurrence: CA)
  Receive Date: 20210702
  Receipt Date: 20210702
  Transmission Date: 20211014
  Serious: Yes (Death, Hospitalization, Other)
  Sender: FDA-Public Use
  Company Number: CA-SAMSUNG BIOEPIS-SB-2021-15995

PATIENT
  Age: 76 Year
  Sex: Female

DRUGS (2)
  1. INFLIXIMAB [Suspect]
     Active Substance: INFLIXIMAB
     Indication: CROHN^S DISEASE
     Route: 042
  2. PREDNISONE. [Concomitant]
     Active Substance: PREDNISONE
     Indication: PRODUCT USED FOR UNKNOWN INDICATION
     Dosage: UNKNOWN
     Route: 065

REACTIONS (11)
  - Contusion [Fatal]
  - Peripheral swelling [Fatal]
  - Procedural pain [Fatal]
  - Skin infection [Fatal]
  - Infection [Fatal]
  - Purulent discharge [Fatal]
  - Skin laceration [Fatal]
  - Death [Fatal]
  - Fistula [Fatal]
  - Joint swelling [Fatal]
  - Skin atrophy [Fatal]
